FAERS Safety Report 19994282 (Version 1)
Quarter: 2021Q4

REPORT INFORMATION
  Report Type: Spontaneous
  Country: US (occurrence: US)
  Receive Date: 20211022
  Receipt Date: 20211022
  Transmission Date: 20220303
  Serious: Yes (Disabling, Other)
  Sender: FDA-Public Use
  Company Number: None

PATIENT
  Age: 81 Year
  Sex: Female
  Weight: 61.23 kg

DRUGS (23)
  1. IBANDRONATE SODIUM [Suspect]
     Active Substance: IBANDRONATE SODIUM
     Indication: Osteoporosis
     Dosage: ?          QUANTITY:1 DF DOSAGE FORM;
     Route: 048
     Dates: start: 20160701, end: 20201001
  2. COREG ER [Concomitant]
  3. LISINOPRIL [Concomitant]
     Active Substance: LISINOPRIL
  4. DIAZEPAM [Concomitant]
     Active Substance: DIAZEPAM
  5. MIRTAZAPINE [Concomitant]
     Active Substance: MIRTAZAPINE
  6. LIALDA [Concomitant]
     Active Substance: MESALAMINE
  7. ROSUVASTATIN [Concomitant]
     Active Substance: ROSUVASTATIN
  8. SYNTHROID [Concomitant]
     Active Substance: LEVOTHYROXINE SODIUM
  9. ASPIRIN [Concomitant]
     Active Substance: ASPIRIN
  10. COENZYME Q10 [Concomitant]
     Active Substance: DIETARY SUPPLEMENT\UBIDECARENONE
  11. FISH OIL [Concomitant]
     Active Substance: FISH OIL
  12. FOLIC ACID [Concomitant]
     Active Substance: FOLIC ACID
  13. CRANBERRY [Concomitant]
     Active Substance: CRANBERRY
  14. ZINC [Concomitant]
     Active Substance: ZINC
  15. VITAMINS [Concomitant]
     Active Substance: VITAMINS
  16. VIT D-3 [Concomitant]
  17. CITRACAL CALCIUM [Concomitant]
  18. TURMERIC-CURCUMIN [Concomitant]
  19. PROBIOTICS NOS [Concomitant]
     Active Substance: PROBIOTICS NOS
  20. LATANOPROST [Concomitant]
     Active Substance: LATANOPROST
  21. CENTRUM SILVER MULTI VIT. [Concomitant]
  22. COMBIGAN [Concomitant]
     Active Substance: BRIMONIDINE TARTRATE\TIMOLOL MALEATE
  23. GARDEN OF LIFE PROBIOTIC [Concomitant]

REACTIONS (2)
  - Femur fracture [None]
  - Stress fracture [None]

NARRATIVE: CASE EVENT DATE: 20191201
